FAERS Safety Report 7504476-2 (Version None)
Quarter: 2011Q2

REPORT INFORMATION
  Report Type: 
  Country: None (occurrence: None)
  Receive Date: 20110525
  Receipt Date: 20110516
  Transmission Date: 20111010
  Serious: Yes (Death, Other)
  Sender: FDA-Public Use
  Company Number: FR-MPIJNJ-2011-01914

PATIENT

DRUGS (3)
  1. BENDAMUSTINE [Suspect]
     Dosage: UNK
     Route: 065
     Dates: start: 20110228
  2. VELCADE [Suspect]
     Dosage: 2.4 MG, UNK
     Route: 042
     Dates: start: 20101206, end: 20110106
  3. RITUXIMAB [Suspect]
     Dosage: UNK
     Route: 065
     Dates: start: 20110228

REACTIONS (2)
  - MENINGOENCEPHALITIS HERPETIC [None]
  - NEUROPATHY PERIPHERAL [None]
